FAERS Safety Report 9400361 (Version 1)
Quarter: 2013Q3

REPORT INFORMATION
  Report Type: Spontaneous
  Country: SE (occurrence: SE)
  Receive Date: 20130715
  Receipt Date: 20130715
  Transmission Date: 20140515
  Serious: Yes (Other)
  Sender: FDA-Public Use
  Company Number: SE-UCBSA-091169

PATIENT
  Age: 41 Year
  Sex: Female

DRUGS (6)
  1. CIMZIA [Suspect]
     Indication: RHEUMATOID ARTHRITIS
     Dosage: DOSE UNSPECIFIED
     Dates: start: 201207, end: 201210
  2. HUMIRA [Suspect]
     Indication: RHEUMATOID ARTHRITIS
     Dosage: DOSE UNSPECIFIED
     Dates: start: 201102, end: 201206
  3. ENBREL [Suspect]
     Indication: RHEUMATOID ARTHRITIS
     Dosage: DOSE UNSPECIFIED
     Dates: start: 200903, end: 201101
  4. ENBREL [Suspect]
     Indication: RHEUMATOID ARTHRITIS
     Dates: start: 2007
  5. PREDNISOLONE [Concomitant]
     Dosage: UNKNOWN
  6. METHOTREXATE [Concomitant]
     Indication: RHEUMATOID ARTHRITIS
     Dates: end: 201207

REACTIONS (3)
  - Hepatitis chronic active [Not Recovered/Not Resolved]
  - Transaminases increased [Recovering/Resolving]
  - Drug ineffective [Recovered/Resolved]
